FAERS Safety Report 4282091-4 (Version None)
Quarter: 2004Q1

REPORT INFORMATION
  Report Type: 
  Country: None (occurrence: None)
  Receive Date: 20040130
  Receipt Date: 20030415
  Transmission Date: 20041129
  Serious: No
  Sender: FDA-Public Use
  Company Number: US-BRISTOL-MYERS SQUIBB COMPANY-12242988

PATIENT

DRUGS (2)
  1. TRAZODONE HCL [Suspect]
  2. HYPERBARIC OXYGEN [Suspect]

REACTIONS (2)
  - ERYTHEMA [None]
  - TACHYCARDIA [None]
